FAERS Safety Report 8263507-5 (Version None)
Quarter: 2012Q2

REPORT INFORMATION
  Report Type: 
  Country: None (occurrence: None)
  Receive Date: 20120405
  Receipt Date: 20120329
  Transmission Date: 20120825
  Serious: Yes (Other)
  Sender: FDA-Public Use
  Company Number: JP-VERTEX PHARMACEUTICALS INC.-AE-2012-003748

PATIENT
  Age: 51 Year
  Sex: Male

DRUGS (9)
  1. TELAVIC (TELAPREVIR) [Suspect]
     Route: 048
     Dates: start: 20120327
  2. TELAVIC (TELAPREVIR) [Suspect]
     Indication: HEPATITIS C
     Route: 048
     Dates: start: 20120215, end: 20120313
  3. REBETOL [Concomitant]
     Indication: HEPATITIS C
     Route: 048
     Dates: start: 20120215, end: 20120313
  4. PEG-INTRON [Concomitant]
     Route: 058
     Dates: start: 20120327
  5. PEG-INTRON [Concomitant]
     Indication: HEPATITIS C
     Route: 058
     Dates: start: 20120215, end: 20120313
  6. TELAVIC (TELAPREVIR) [Suspect]
     Route: 048
     Dates: start: 20120313, end: 20120327
  7. REBETOL [Concomitant]
     Route: 048
     Dates: start: 20120313
  8. PEG-INTRON [Concomitant]
     Route: 058
     Dates: start: 20120313, end: 20120327
  9. DORAL [Concomitant]
     Route: 048
     Dates: end: 20120306

REACTIONS (5)
  - ANAEMIA [None]
  - PLATELET COUNT DECREASED [None]
  - NEUTROPHIL COUNT DECREASED [None]
  - PYREXIA [None]
  - HYPERURICAEMIA [None]
